FAERS Safety Report 25414802 (Version 1)
Quarter: 2025Q2

REPORT INFORMATION
  Report Type: Spontaneous
  Country: CA (occurrence: CA)
  Receive Date: 20250609
  Receipt Date: 20250609
  Transmission Date: 20250717
  Serious: Yes (Other)
  Sender: PFIZER
  Company Number: CA-PFIZER INC-202500116838

PATIENT
  Age: 42 Year
  Sex: Male
  Weight: 122 kg

DRUGS (7)
  1. HYDROMORPHONE HYDROCHLORIDE [Suspect]
     Active Substance: HYDROMORPHONE HYDROCHLORIDE
  2. CIPROFLOXACIN [Suspect]
     Active Substance: CIPROFLOXACIN
  3. CITALOPRAM [Suspect]
     Active Substance: CITALOPRAM
  4. DIMENHYDRINATE [Suspect]
     Active Substance: DIMENHYDRINATE
  5. IGIVNEX [Suspect]
     Active Substance: HUMAN IMMUNOGLOBULIN G
     Indication: Immune thrombocytopenia
     Route: 041
  6. TINZAPARIN [Suspect]
     Active Substance: TINZAPARIN
  7. ZOPICLONE [Suspect]
     Active Substance: ZOPICLONE

REACTIONS (6)
  - Body temperature increased [Recovered/Resolved]
  - Chest discomfort [Recovered/Resolved]
  - Chest pain [Recovered/Resolved]
  - Electrocardiogram QT prolonged [Recovered/Resolved]
  - Hot flush [Recovered/Resolved]
  - Hyperhidrosis [Recovered/Resolved]
